FAERS Safety Report 6523435-X (Version None)
Quarter: 2009Q4

REPORT INFORMATION
  Report Type: 
  Country: None (occurrence: None)
  Receive Date: 20091222
  Receipt Date: 20091204
  Transmission Date: 20100525
  Serious: Yes (Death, Life-Threatening, Hospitalization)
  Sender: FDA-Public Use
  Company Number: 08-AUR-06810

PATIENT
  Age: 81 Year
  Sex: Female

DRUGS (6)
  1. SIMVASTATIN [Suspect]
     Indication: CARDIOVASCULAR DISORDER
     Dosage: ORAL
     Route: 048
     Dates: end: 20081118
  2. SIMVASTATIN [Suspect]
     Indication: PROPHYLAXIS
     Dosage: ORAL
     Route: 048
     Dates: end: 20081118
  3. FUSIDIC ACID [Suspect]
     Indication: STAPHYLOCOCCAL INFECTION
     Dosage: 500MG ORAL
     Route: 048
     Dates: start: 20081001
  4. TRIMETHOPRIM [Suspect]
     Indication: STAPHYLOCOCCAL INFECTION
     Dosage: 200MG BID ORAL
     Route: 048
     Dates: start: 20081001
  5. BUMETANIDE [Concomitant]
  6. RAMIPRIL [Concomitant]

REACTIONS (4)
  - BEDRIDDEN [None]
  - RHABDOMYOLYSIS [None]
  - SEPSIS [None]
  - URINARY TRACT INFECTION [None]
